FAERS Safety Report 7228513-8 (Version None)
Quarter: 2011Q1

REPORT INFORMATION
  Report Type: 
  Country: None (occurrence: None)
  Receive Date: 20110117
  Receipt Date: 20110106
  Transmission Date: 20110831
  Serious: Yes (Hospitalization)
  Sender: FDA-Public Use
  Company Number: US-BIOGENIDEC-2010BI039742

PATIENT
  Age: 44 Year
  Sex: Female
  Weight: 72 kg

DRUGS (3)
  1. TYSABRI [Suspect]
     Indication: MULTIPLE SCLEROSIS
     Route: 042
     Dates: start: 20090423
  2. AVONEX [Concomitant]
     Indication: MULTIPLE SCLEROSIS
     Route: 030
     Dates: start: 19970701
  3. KEPPRA [Concomitant]
     Indication: CONVULSION
     Route: 048

REACTIONS (6)
  - MUSCLE SPASMS [None]
  - ROAD TRAFFIC ACCIDENT [None]
  - PAIN [None]
  - ABDOMINAL PAIN UPPER [None]
  - THROMBOSIS [None]
  - HEADACHE [None]
